FAERS Safety Report 6099425-0 (Version None)
Quarter: 2009Q1

REPORT INFORMATION
  Report Type: 
  Country: None (occurrence: None)
  Receive Date: 20090226
  Receipt Date: 20090211
  Transmission Date: 20090719
  Serious: Yes (Hospitalization)
  Sender: FDA-Public Use
  Company Number: 2009000407

PATIENT
  Age: 60 Year
  Sex: Female

DRUGS (3)
  1. TARCEVA [Suspect]
     Indication: NON-SMALL CELL LUNG CANCER
     Dosage: (150 MG, QD), ORAL
     Route: 048
     Dates: start: 20090128, end: 20090203
  2. DECADRON [Concomitant]
  3. BENADRYL [Concomitant]

REACTIONS (2)
  - DEMYELINATING POLYNEUROPATHY [None]
  - GUILLAIN-BARRE SYNDROME [None]
